FAERS Safety Report 9166177 (Version 2)
Quarter: 2013Q3

REPORT INFORMATION
  Report Type: Spontaneous
  Country: US (occurrence: US)
  Receive Date: 20130315
  Receipt Date: 20130722
  Transmission Date: 20140515
  Serious: Yes (Hospitalization, Other)
  Sender: FDA-Public Use
  Company Number: US-009507513-1303USA006807

PATIENT
  Age: 57 Year
  Sex: Female

DRUGS (7)
  1. REBETOL [Suspect]
     Indication: CHRONIC HEPATITIS C
     Dosage: 1000 MG, QD
     Route: 048
     Dates: start: 20120829, end: 20120912
  2. REBETOL [Suspect]
     Dosage: 400 MG, QD
     Route: 048
     Dates: start: 20120912, end: 20121031
  3. REBETOL [Suspect]
     Dosage: 200 MG, QD
     Route: 048
     Dates: start: 20121031, end: 20121106
  4. REBETOL [Suspect]
     Dosage: 400 MG, QD
     Route: 048
     Dates: start: 20121106
  5. VICTRELIS [Suspect]
     Dosage: UNK UNK, TID
     Route: 048
     Dates: start: 20121025
  6. PEGASYS [Suspect]
     Indication: CHRONIC HEPATITIS C
     Dosage: 180 MICROGRAM, QW
     Dates: start: 20120829
  7. PROGRAF [Concomitant]
     Dosage: UNK

REACTIONS (13)
  - Anaemia [Unknown]
  - Palpitations [Unknown]
  - Depressed mood [Unknown]
  - Muscle spasms [Unknown]
  - Abdominal pain [Unknown]
  - Weight decreased [Unknown]
  - Nausea [Unknown]
  - Decreased appetite [Unknown]
  - Haematocrit decreased [Unknown]
  - Dry mouth [Unknown]
  - Cheilitis [Unknown]
  - Oral pain [Not Recovered/Not Resolved]
  - Diarrhoea [Unknown]
